FAERS Safety Report 7362514-4 (Version None)
Quarter: 2011Q1

REPORT INFORMATION
  Report Type: 
  Country: None (occurrence: None)
  Receive Date: 20110318
  Receipt Date: 20100714
  Transmission Date: 20110831
  Serious: Yes (Life-Threatening, Hospitalization)
  Sender: FDA-Public Use
  Company Number: JP-ASTRAZENECA-2011SE14701

PATIENT
  Age: 30986 Day
  Sex: Male

DRUGS (22)
  1. MEROPEN [Suspect]
     Route: 042
     Dates: start: 20100614, end: 20100621
  2. EXCEGRAN [Suspect]
     Indication: CONVULSION
     Route: 048
     Dates: start: 20100318, end: 20100512
  3. GASTER [Concomitant]
     Route: 048
     Dates: start: 20100318, end: 20100403
  4. GASTER [Concomitant]
     Route: 042
     Dates: start: 20100318, end: 20100403
  5. ASPIRIN [Concomitant]
     Route: 048
     Dates: start: 20100402
  6. MIYA BM [Concomitant]
     Route: 048
     Dates: start: 20100628, end: 20100707
  7. ZYVOX [Concomitant]
     Route: 048
     Dates: start: 20100422, end: 20100502
  8. EXCEGRAN [Suspect]
     Route: 048
  9. SEPAMIT-R [Concomitant]
     Route: 048
     Dates: start: 20100323, end: 20100728
  10. GABAPEN [Concomitant]
     Route: 048
     Dates: start: 20100507, end: 20100602
  11. MEROPEN [Suspect]
     Route: 042
  12. ONON [Concomitant]
     Route: 048
     Dates: start: 20100419, end: 20100616
  13. COLONEL [Concomitant]
     Route: 048
     Dates: start: 20100507, end: 20100602
  14. MEROPEN [Suspect]
     Indication: URINARY TRACT INFECTION
     Route: 042
     Dates: end: 20100507
  15. MAINTATE [Concomitant]
     Route: 048
     Dates: start: 20100330
  16. FLAGYL [Concomitant]
     Route: 048
     Dates: start: 20100425, end: 20100501
  17. PREDNISOLONE [Concomitant]
     Route: 048
     Dates: start: 20100506, end: 20100721
  18. SEIBULE [Concomitant]
     Route: 048
     Dates: start: 20100610
  19. TAGAMET [Concomitant]
     Route: 048
     Dates: start: 20100401, end: 20100615
  20. ZYVOX [Concomitant]
     Dates: start: 20100422, end: 20100502
  21. MALFA [Concomitant]
     Route: 048
     Dates: start: 20100510, end: 20100728
  22. THYRADIN [Concomitant]
     Route: 048
     Dates: start: 20100512

REACTIONS (1)
  - INTERSTITIAL LUNG DISEASE [None]
